FAERS Safety Report 15762853 (Version 2)
Quarter: 2019Q1

REPORT INFORMATION
  Report Type: Not Available
  Country: US (occurrence: US)
  Receive Date: 20181226
  Receipt Date: 20190113
  Transmission Date: 20190417
  Serious: Yes (Hospitalization, Other)
  Sender: FDA-Public Use
  Company Number: US-NEUROCRINE BIOSCIENCES INC.-2018NBI03550

PATIENT
  Age: 63 Year
  Sex: Female

DRUGS (12)
  1. SEROQUEL [Concomitant]
     Active Substance: QUETIAPINE FUMARATE
  2. ATORVASTATIN [Concomitant]
     Active Substance: ATORVASTATIN
  3. AMITRIPTYLINE [Concomitant]
     Active Substance: AMITRIPTYLINE
     Dosage: AT NIGHT
  4. METFORMIN [Concomitant]
     Active Substance: METFORMIN HYDROCHLORIDE
  5. FEROSUL [Concomitant]
  6. AMITRIPTYLINE [Concomitant]
     Active Substance: AMITRIPTYLINE
     Dosage: AT NIGHT
  7. INGREZZA [Suspect]
     Active Substance: VALBENAZINE
     Indication: TARDIVE DYSKINESIA
     Route: 048
     Dates: start: 20180913
  8. LUMIGAN [Concomitant]
     Active Substance: BIMATOPROST
  9. KLONOPIN [Concomitant]
     Active Substance: CLONAZEPAM
  10. CLONIDINE. [Concomitant]
     Active Substance: CLONIDINE
  11. BIOTIN [Concomitant]
     Active Substance: BIOTIN
  12. AMLODIPINE [Concomitant]
     Active Substance: AMLODIPINE BESYLATE

REACTIONS (3)
  - Fall [Unknown]
  - Mental status changes [Unknown]
  - Upper limb fracture [Unknown]

NARRATIVE: CASE EVENT DATE: 20181127
